FAERS Safety Report 10272637 (Version 1)
Quarter: 2014Q2

REPORT INFORMATION
  Report Type: Spontaneous
  Country: US (occurrence: None)
  Receive Date: 20140630
  Receipt Date: 20140630
  Transmission Date: 20141212
  Serious: Yes (Life-Threatening, Hospitalization)
  Sender: FDA-Public Use
  Company Number: None

PATIENT
  Age: 51 Year
  Sex: Male
  Weight: 73.48 kg

DRUGS (1)
  1. BUPROPION [Suspect]
     Indication: BIPOLAR I DISORDER
     Route: 048
     Dates: start: 20140620, end: 20140620

REACTIONS (15)
  - Product substitution issue [None]
  - Product quality issue [None]
  - Acute myocardial infarction [None]
  - Cardiogenic shock [None]
  - Syncope [None]
  - Tachycardia [None]
  - Ventricular extrasystoles [None]
  - Ventricular tachycardia [None]
  - Hypertension [None]
  - Tinnitus [None]
  - Paraesthesia [None]
  - Intracardiac thrombus [None]
  - Coronary artery occlusion [None]
  - Nausea [None]
  - Vomiting [None]
